FAERS Safety Report 23871102 (Version 1)
Quarter: 2024Q2

REPORT INFORMATION
  Report Type: Spontaneous
  Country: US (occurrence: US)
  Receive Date: 20240518
  Receipt Date: 20240518
  Transmission Date: 20240717
  Serious: No
  Sender: FDA-Public Use
  Company Number: US-TARSUS PHARMACEUTICALS-TSP-US-2024-000116

PATIENT
  Sex: Male

DRUGS (2)
  1. XDEMVY [Suspect]
     Active Substance: LOTILANER
     Indication: Dry eye
     Dosage: UNK
     Route: 047
     Dates: start: 2024
  2. XDEMVY [Suspect]
     Active Substance: LOTILANER
     Indication: Lacrimation increased

REACTIONS (3)
  - Drug effective for unapproved indication [Unknown]
  - Prescription drug used without a prescription [Unknown]
  - Intentional product misuse [Unknown]
